FAERS Safety Report 15330983 (Version 1)
Quarter: 2018Q3

REPORT INFORMATION
  Report Type: Spontaneous
  Country: CA (occurrence: CA)
  Receive Date: 20180829
  Receipt Date: 20180829
  Transmission Date: 20181010
  Serious: Yes (Death, Other)
  Sender: FDA-Public Use
  Company Number: CA-GLAXOSMITHKLINE-CA2018GSK127573

PATIENT
  Age: 81 Year
  Sex: Male

DRUGS (1)
  1. TRELEGY ELLIPTA [Suspect]
     Active Substance: FLUTICASONE FUROATE\UMECLIDINIUM BROMIDE\VILANTEROL TRIFENATATE
     Indication: CHRONIC OBSTRUCTIVE PULMONARY DISEASE
     Dosage: UNK

REACTIONS (8)
  - Pain [Unknown]
  - Death [Fatal]
  - Plasma cell myeloma [Unknown]
  - Joint injury [Unknown]
  - Localised infection [Unknown]
  - Fall [Unknown]
  - Bone lesion [Unknown]
  - Skin lesion [Unknown]

NARRATIVE: CASE EVENT DATE: 20180823
